FAERS Safety Report 5504930-9 (Version None)
Quarter: 2007Q4

REPORT INFORMATION
  Report Type: 
  Country: None (occurrence: None)
  Receive Date: 20071102
  Receipt Date: 20071030
  Transmission Date: 20080405
  Serious: Yes (Disabling, Other)
  Sender: FDA-Public Use
  Company Number: PHEH2007US12343

PATIENT
  Sex: Female

DRUGS (2)
  1. DIOVAN [Suspect]
     Indication: HYPERTENSION
     Dosage: 180 MG, UNK
  2. DIOVAN [Suspect]
     Dosage: 320 MG, ONCE/SINGLE

REACTIONS (11)
  - ABDOMINAL RIGIDITY [None]
  - ARTHRALGIA [None]
  - COORDINATION ABNORMAL [None]
  - FOOT FRACTURE [None]
  - HYPERTENSION [None]
  - HYPOAESTHESIA [None]
  - INSOMNIA [None]
  - JOINT INJURY [None]
  - MUSCLE CONTRACTIONS INVOLUNTARY [None]
  - PAIN IN EXTREMITY [None]
  - WALKING AID USER [None]
